FAERS Safety Report 14606788 (Version 1)
Quarter: 2018Q1

REPORT INFORMATION
  Report Type: Spontaneous
  Country: JP (occurrence: JP)
  Receive Date: 20180307
  Receipt Date: 20180307
  Transmission Date: 20180509
  Serious: Yes (Life-Threatening)
  Sender: FDA-Public Use
  Company Number: JP-ACTELION-A-CH2016-141575

PATIENT
  Age: 75 Year
  Sex: Female

DRUGS (12)
  1. RABEPRAZOLE NA [Concomitant]
     Active Substance: RABEPRAZOLE SODIUM
  2. FUROSEMIDE. [Concomitant]
     Active Substance: FUROSEMIDE
  3. SPIRONOLACTONE. [Concomitant]
     Active Substance: SPIRONOLACTONE
  4. REBAMIPIDE [Concomitant]
     Active Substance: REBAMIPIDE
  5. RIOCIGUAT [Suspect]
     Active Substance: RIOCIGUAT
     Indication: PRODUCT USED FOR UNKNOWN INDICATION
     Dosage: UNK
     Route: 065
  6. CARELOAD [Concomitant]
     Active Substance: BERAPROST SODIUM
  7. ADCIRCA [Concomitant]
     Active Substance: TADALAFIL
  8. OPSUMIT [Suspect]
     Active Substance: MACITENTAN
     Indication: PULMONARY ARTERIAL HYPERTENSION
     Dosage: 10 MG, QD
     Route: 048
     Dates: start: 20160804, end: 20160817
  9. TRACLEER [Suspect]
     Active Substance: BOSENTAN
     Indication: PULMONARY ARTERIAL HYPERTENSION
     Route: 048
  10. ETHYL ICOSAPENTATE [Concomitant]
     Active Substance: ICOSAPENT ETHYL
  11. BIO-THREE [Concomitant]
     Active Substance: HERBALS
  12. OXYGEN. [Concomitant]
     Active Substance: OXYGEN

REACTIONS (1)
  - Pulmonary congestion [Unknown]

NARRATIVE: CASE EVENT DATE: 20160817
